FAERS Safety Report 8538972-6 (Version None)
Quarter: 2012Q3

REPORT INFORMATION
  Report Type: 
  Country: None (occurrence: None)
  Receive Date: 20120726
  Receipt Date: 20120720
  Transmission Date: 20120928
  Serious: Yes (Other)
  Sender: FDA-Public Use
  Company Number: PHEH2012US014280

PATIENT
  Sex: Female

DRUGS (9)
  1. RECLAST [Suspect]
     Dosage: UNK UKN, UNK
     Route: 042
  2. ASPIRIN [Concomitant]
     Dosage: UNK UKN, UNK
  3. CALCIUM [Concomitant]
     Dosage: UNK UKN, UNK
  4. MULTIVITAMIN [Concomitant]
     Dosage: UNK UKN, UNK
  5. MIRTAZAPINE [Concomitant]
     Dosage: UNK UKN, UNK
  6. RANITIDINE [Concomitant]
     Dosage: UNK UKN, UNK
  7. FISH OIL [Concomitant]
     Dosage: UNK UKN, UNK
  8. TRAMADOL HYDROCHLORIDE [Concomitant]
     Dosage: UNK UKN, UNK
  9. LISINOPRIL [Concomitant]
     Dosage: UNK UKN, UNK

REACTIONS (7)
  - FRACTURE [None]
  - SPINAL DISORDER [None]
  - DYSSTASIA [None]
  - TOOTH DISORDER [None]
  - GAIT DISTURBANCE [None]
  - FALL [None]
  - PAIN [None]
